FAERS Safety Report 5858078-4 (Version None)
Quarter: 2008Q3

REPORT INFORMATION
  Report Type: 
  Country: None (occurrence: None)
  Receive Date: 20080826
  Receipt Date: 20080819
  Transmission Date: 20090109
  Serious: Yes (Other)
  Sender: FDA-Public Use
  Company Number: ES-WYE-G02028408

PATIENT
  Age: 51 Year
  Sex: Male

DRUGS (3)
  1. TEMSIROLIMUS [Suspect]
     Indication: RENAL CANCER METASTATIC
     Route: 042
     Dates: start: 20080717, end: 20080731
  2. HEPARIN [Concomitant]
     Indication: VENA CAVA THROMBOSIS
     Dosage: UNKNOWN
     Dates: start: 20071001
  3. HEPARIN [Concomitant]
     Indication: RENAL VEIN THROMBOSIS

REACTIONS (5)
  - BLOOD ALKALINE PHOSPHATASE INCREASED [None]
  - CONDITION AGGRAVATED [None]
  - GAMMA-GLUTAMYLTRANSFERASE INCREASED [None]
  - RENAL FAILURE [None]
  - TRANSAMINASES INCREASED [None]
